FAERS Safety Report 4661722-0 (Version None)
Quarter: 2005Q2

REPORT INFORMATION
  Report Type: 
  Country: None (occurrence: None)
  Receive Date: 20050512
  Receipt Date: 20050512
  Transmission Date: 20051028
  Serious: Yes (Other)
  Sender: FDA-Public Use
  Company Number: None

PATIENT
  Sex: Female

DRUGS (1)
  1. WELLBUTRIN [Suspect]
     Indication: DEPRESSION
     Dosage: WELLBUTRIN GENERIC   200 MG PO BID
     Route: 048

REACTIONS (5)
  - ADVERSE EVENT [None]
  - CONDITION AGGRAVATED [None]
  - HEADACHE [None]
  - INSOMNIA [None]
  - THERAPEUTIC RESPONSE DECREASED [None]
